FAERS Safety Report 8484867-6 (Version None)
Quarter: 2012Q3

REPORT INFORMATION
  Report Type: 
  Country: None (occurrence: None)
  Receive Date: 20120703
  Receipt Date: 20120628
  Transmission Date: 20120928
  Serious: Yes (Death)
  Sender: FDA-Public Use
  Company Number: US-ELI_LILLY_AND_COMPANY-US201008006605

PATIENT
  Sex: Female

DRUGS (5)
  1. FORTEO [Suspect]
     Dosage: 20 UG, QD
     Route: 058
  2. FORTEO [Suspect]
     Dosage: 20 UG, QD
     Route: 058
  3. FORTEO [Suspect]
     Indication: OSTEOPOROSIS
     Dosage: 20 UG, QD
     Route: 058
     Dates: start: 20100701
  4. FORTEO [Suspect]
     Dosage: 20 UG, QD
     Route: 058
  5. FORTEO [Suspect]
     Dosage: 20 UG, QD
     Route: 058

REACTIONS (14)
  - BLISTER [None]
  - HAIR GROWTH ABNORMAL [None]
  - NAIL GROWTH ABNORMAL [None]
  - INFLUENZA [None]
  - INJECTION SITE HAEMATOMA [None]
  - BRONCHIAL DISORDER [None]
  - LIMB INJURY [None]
  - MASS [None]
  - DEATH [None]
  - FALL [None]
  - BONE DISORDER [None]
  - PAIN [None]
  - ACCIDENTAL OVERDOSE [None]
  - ACNE [None]
